FAERS Safety Report 7746381-2 (Version None)
Quarter: 2011Q3

REPORT INFORMATION
  Report Type: 
  Country: None (occurrence: None)
  Receive Date: 20110913
  Receipt Date: 20110913
  Transmission Date: 20111222
  Serious: No
  Sender: FDA-Public Use
  Company Number: None

PATIENT

DRUGS (1)
  1. SINGULAIR [Suspect]
     Indication: MULTIPLE ALLERGIES
     Dosage: 1 PILL
     Route: 048
     Dates: start: 20110510, end: 20110910

REACTIONS (5)
  - OPPOSITIONAL DEFIANT DISORDER [None]
  - ANGER [None]
  - ABNORMAL BEHAVIOUR [None]
  - CRYING [None]
  - AGGRESSION [None]
